FAERS Safety Report 5261340-X (Version None)
Quarter: 2007Q1

REPORT INFORMATION
  Report Type: 
  Country: None (occurrence: None)
  Receive Date: 20070307
  Receipt Date: 20070223
  Transmission Date: 20070707
  Serious: Yes (Hospitalization)
  Sender: FDA-Public Use
  Company Number: 2006-02646

PATIENT
  Age: 72 Year
  Sex: Female

DRUGS (10)
  1. VELCADE [Suspect]
     Indication: MANTLE CELL LYMPHOMA
     Dosage: INTRAVENOUS; 3.20
     Route: 042
     Dates: start: 20060321, end: 20060619
  2. VELCADE [Suspect]
     Indication: MANTLE CELL LYMPHOMA
     Dosage: INTRAVENOUS; 3.20
     Route: 042
     Dates: start: 20060313
  3. PREDNISONE [Suspect]
     Indication: MANTLE CELL LYMPHOMA
     Dates: start: 20060313, end: 20060629
  4. CYCLOPHOSPHAMIDE [Suspect]
     Indication: MANTLE CELL LYMPHOMA
     Dosage: INTRAVENOUS; 2020.00 INTRAVENOUS
     Route: 042
     Dates: start: 20060320, end: 20060612
  5. CYCLOPHOSPHAMIDE [Suspect]
     Indication: MANTLE CELL LYMPHOMA
     Dosage: INTRAVENOUS; 2020.00 INTRAVENOUS
     Route: 042
     Dates: start: 20060313
  6. RITUXIMAB(RITUXIMAB) SOLUTION [Suspect]
     Indication: MANTLE CELL LYMPHOMA
     Dosage: INTRAVENOUS; 758.00 INTRAVENOUS
     Route: 042
     Dates: start: 20060320, end: 20060612
  7. RITUXIMAB(RITUXIMAB) SOLUTION [Suspect]
     Indication: MANTLE CELL LYMPHOMA
     Dosage: INTRAVENOUS; 758.00 INTRAVENOUS
     Route: 042
     Dates: start: 20060313
  8. PAXIL [Concomitant]
  9. AMBIEN (ZOLIPDEM TARTRATE) [Concomitant]
  10. COUMADIN [Concomitant]

REACTIONS (6)
  - ATRIAL FIBRILLATION [None]
  - ATRIAL FLUTTER [None]
  - COUGH [None]
  - OEDEMA PERIPHERAL [None]
  - PYREXIA [None]
  - UPPER RESPIRATORY TRACT INFECTION [None]
